FAERS Safety Report 19664991 (Version 2)
Quarter: 2021Q3

REPORT INFORMATION
  Report Type: Report from Study
  Country: CO (occurrence: CO)
  Receive Date: 20210806
  Receipt Date: 20210920
  Transmission Date: 20211014
  Serious: Yes (Hospitalization, Other)
  Sender: FDA-Public Use
  Company Number: CO-IPSEN BIOPHARMACEUTICALS, INC.-2021-18026

PATIENT
  Age: 59 Year
  Sex: Female

DRUGS (5)
  1. SOMATULINE AUTOGEL [Suspect]
     Active Substance: LANREOTIDE ACETATE
     Indication: ACROMEGALY
     Dosage: 120 MG, QM
     Route: 058
     Dates: start: 20200101, end: 20210606
  2. LOSARTAN. [Concomitant]
     Active Substance: LOSARTAN
     Dosage: UNK
  3. LEVOTHYROXINE. [Concomitant]
     Active Substance: LEVOTHYROXINE
     Dosage: UNK
  4. TEPLIZUMAB. [Concomitant]
     Active Substance: TEPLIZUMAB
     Dosage: UNK
  5. AMLODIPINE [Concomitant]
     Active Substance: AMLODIPINE BESYLATE
     Dosage: UNK

REACTIONS (11)
  - Brain neoplasm benign [Recovering/Resolving]
  - Eyelid ptosis [Recovering/Resolving]
  - Condition aggravated [Not Recovered/Not Resolved]
  - Post procedural inflammation [Not Recovered/Not Resolved]
  - Optic nerve compression [Recovered/Resolved]
  - Neoplasm [Recovering/Resolving]
  - Eye pain [Not Recovered/Not Resolved]
  - Facial paralysis [Recovering/Resolving]
  - Periorbital oedema [Not Recovered/Not Resolved]
  - Vision blurred [Not Recovered/Not Resolved]
  - Drug effect less than expected [Unknown]

NARRATIVE: CASE EVENT DATE: 202107
